FAERS Safety Report 5423063-3 (Version None)
Quarter: 2007Q3

REPORT INFORMATION
  Report Type: 
  Country: None (occurrence: None)
  Receive Date: 20070821
  Receipt Date: 20070807
  Transmission Date: 20080115
  Serious: Yes (Hospitalization)
  Sender: FDA-Public Use
  Company Number: MEDI-0005841

PATIENT
  Age: 82 Year
  Sex: Female

DRUGS (6)
  1. ETHYOL [Suspect]
  2. ETHYOL [Suspect]
  3. ETHYOL [Suspect]
  4. ETHYOL [Suspect]
  5. RADIATION THERAPY [Concomitant]
  6. FLUOROURACIL [Concomitant]

REACTIONS (9)
  - BREATH SOUNDS ABNORMAL [None]
  - DEPRESSED LEVEL OF CONSCIOUSNESS [None]
  - DIARRHOEA [None]
  - HYPOTENSION [None]
  - PAIN IN EXTREMITY [None]
  - PHARMACEUTICAL PRODUCT COMPLAINT [None]
  - PULMONARY EMBOLISM [None]
  - RASH [None]
  - SEPSIS SYNDROME [None]
